FAERS Safety Report 8064631-2 (Version None)
Quarter: 2012Q1

REPORT INFORMATION
  Report Type: 
  Country: None (occurrence: None)
  Receive Date: 20120123
  Receipt Date: 20120116
  Transmission Date: 20120608
  Serious: Yes (Hospitalization)
  Sender: FDA-Public Use
  Company Number: IT-ASTRAZENECA-2012SE03130

PATIENT
  Age: 24013 Day
  Sex: Female

DRUGS (6)
  1. LORAZEPAM [Concomitant]
  2. SEROQUEL XR [Suspect]
     Indication: DEPRESSION
     Route: 048
     Dates: start: 20111018, end: 20111220
  3. TI TRE [Suspect]
     Indication: DEPRESSION
     Route: 048
     Dates: start: 20111019
  4. METFORMIN HCL [Concomitant]
  5. DENIBAN [Suspect]
     Indication: DEPRESSION
     Route: 048
     Dates: start: 20111011, end: 20111115
  6. SIMVASTATIN [Concomitant]

REACTIONS (1)
  - HEPATITIS [None]
